FAERS Safety Report 8132273-6 (Version None)
Quarter: 2012Q1

REPORT INFORMATION
  Report Type: 
  Country: None (occurrence: None)
  Receive Date: 20120208
  Receipt Date: 20120123
  Transmission Date: 20120608
  Serious: Yes (Hospitalization)
  Sender: FDA-Public Use
  Company Number: DSA_48952_2012

PATIENT
  Age: 27 Year
  Sex: Male

DRUGS (1)
  1. VENLAFAXINE HCL [Suspect]
     Indication: PRODUCT USED FOR UNKNOWN INDICATION
     Dosage: 6.3 G TOTAL, ONCE; NOT THE PRESCRIBED AMOUNT

REACTIONS (13)
  - CREPITATIONS [None]
  - LUNG CONSOLIDATION [None]
  - LUNG INFILTRATION [None]
  - DYSPNOEA [None]
  - HEART RATE INCREASED [None]
  - CONVULSION [None]
  - RESPIRATORY FAILURE [None]
  - PULMONARY EOSINOPHILIA [None]
  - EOSINOPHILIA [None]
  - AGITATION [None]
  - BODY TEMPERATURE INCREASED [None]
  - OVERDOSE [None]
  - SHOCK [None]
